FAERS Safety Report 15136034 (Version 1)
Quarter: 2018Q3

REPORT INFORMATION
  Report Type: Spontaneous
  Country: US (occurrence: US)
  Receive Date: 20180712
  Receipt Date: 20180712
  Transmission Date: 20181010
  Serious: Yes (Other)
  Sender: FDA-Public Use
  Company Number: US-AMGEN-USASP2018093797

PATIENT
  Age: 41 Year
  Sex: Female

DRUGS (1)
  1. AIMOVIG [Suspect]
     Active Substance: ERENUMAB-AOOE
     Indication: PRODUCT USED FOR UNKNOWN INDICATION
     Dosage: 140 MG, QMO (2 INJECTIONS OF 70MG)
     Route: 065
     Dates: start: 20180613

REACTIONS (3)
  - Influenza like illness [Recovered/Resolved]
  - Depression [Recovered/Resolved]
  - Cardiac flutter [Unknown]

NARRATIVE: CASE EVENT DATE: 2018
